FAERS Safety Report 5211871-3 (Version None)
Quarter: 2007Q1

REPORT INFORMATION
  Report Type: 
  Country: None (occurrence: None)
  Receive Date: 20070116
  Receipt Date: 20070109
  Transmission Date: 20070707
  Serious: Yes (Disabling, Other)
  Sender: FDA-Public Use
  Company Number: HQWYE447122MAY06

PATIENT
  Age: 53 Year
  Sex: Female

DRUGS (4)
  1. RAPAMUNE [Suspect]
     Indication: PROPHYLAXIS AGAINST TRANSPLANT REJECTION
     Dosage: 3 MG; FREQUENCY NOT SPECIFIED ORAL
     Route: 048
     Dates: start: 20051124, end: 20060517
  2. INSULIN [Concomitant]
  3. FLUVASTATIN (FLUVASTATIN) [Concomitant]
  4. LACTULOSE [Concomitant]

REACTIONS (1)
  - ASTHENIA [None]
